FAERS Safety Report 14327825 (Version 2)
Quarter: 2018Q1

REPORT INFORMATION
  Report Type: Report from Study
  Country: US (occurrence: US)
  Receive Date: 20171227
  Receipt Date: 20180129
  Transmission Date: 20180509
  Serious: Yes (Hospitalization, Other)
  Sender: FDA-Public Use
  Company Number: US-BAYER-2017-223154

PATIENT
  Age: 80 Year
  Sex: Male
  Weight: 86.17 kg

DRUGS (4)
  1. ADEMPAS [Suspect]
     Active Substance: RIOCIGUAT
     Indication: PULMONARY ARTERIAL HYPERTENSION
     Dosage: 1.0 MG, TID
     Route: 048
     Dates: start: 20170925
  2. ADEMPAS [Suspect]
     Active Substance: RIOCIGUAT
     Indication: PULMONARY ARTERIAL HYPERTENSION
     Dosage: 1.0 MG, TID
     Route: 048
  3. ADEMPAS [Suspect]
     Active Substance: RIOCIGUAT
     Indication: PULMONARY ARTERIAL HYPERTENSION
     Dosage: UNK
  4. APIXABAN [Concomitant]
     Active Substance: APIXABAN
     Dosage: UNK

REACTIONS (11)
  - Haemoglobin decreased [Unknown]
  - Gastrointestinal haemorrhage [None]
  - Epistaxis [None]
  - Oxygen therapy [Unknown]
  - Acute kidney injury [Unknown]
  - Polyarthritis [Unknown]
  - Confusional state [Unknown]
  - Gastric ulcer [Unknown]
  - Prostatomegaly [Unknown]
  - Oxygen saturation decreased [Unknown]
  - Asthenia [Unknown]
